FAERS Safety Report 12492819 (Version 1)
Quarter: 2016Q2

REPORT INFORMATION
  Report Type: Spontaneous
  Country: US (occurrence: None)
  Receive Date: 20160623
  Receipt Date: 20160623
  Transmission Date: 20160815
  Serious: No
  Sender: FDA-Public Use
  Company Number: None

PATIENT
  Age: 16 Year
  Sex: Female
  Weight: 41.28 kg

DRUGS (1)
  1. GAMMAGARD S/D [Suspect]
     Active Substance: HUMAN IMMUNOGLOBULIN G
     Indication: CHRONIC INFLAMMATORY DEMYELINATING POLYRADICULONEUROPATHY
     Dosage: 25 G EACH WEEK INTRAVENOUS DRIP
     Route: 041
     Dates: start: 20160501, end: 20160617

REACTIONS (3)
  - Rash erythematous [None]
  - Rash [None]
  - Rash papular [None]

NARRATIVE: CASE EVENT DATE: 20160617
